FAERS Safety Report 18578160 (Version 1)
Quarter: 2020Q4

REPORT INFORMATION
  Report Type: Spontaneous
  Country: US (occurrence: US)
  Receive Date: 20201204
  Receipt Date: 20201204
  Transmission Date: 20210114
  Serious: Yes (Other)
  Sender: FDA-Public Use
  Company Number: US-ALVOGEN-2020-ALVOGEN-115356

PATIENT
  Sex: Female

DRUGS (1)
  1. LEVOTHYROXINE. [Suspect]
     Active Substance: LEVOTHYROXINE
     Indication: HYPOTHYROIDISM

REACTIONS (8)
  - Drug ineffective [Unknown]
  - Depression [Unknown]
  - Heart rate decreased [Unknown]
  - Palpitations [Unknown]
  - Weight increased [Unknown]
  - Swelling [Unknown]
  - Fatigue [Unknown]
  - Alopecia [Unknown]
